FAERS Safety Report 6193421-0 (Version None)
Quarter: 2009Q2

REPORT INFORMATION
  Report Type: 
  Country: None (occurrence: None)
  Receive Date: 20090518
  Receipt Date: 20080917
  Transmission Date: 20091009
  Serious: No
  Sender: FDA-Public Use
  Company Number: US-ABBOTT-08P-163-0476769-00

PATIENT
  Sex: Female

DRUGS (3)
  1. AZMACORT [Suspect]
     Indication: ASTHMA
     Route: 055
  2. BECLOMETASONE DIPROPIONATE [Suspect]
     Indication: ASTHMA
     Route: 055
     Dates: start: 20080917, end: 20080917
  3. FUROSEMIDE [Concomitant]
     Indication: HYPERTENSION
     Route: 048

REACTIONS (3)
  - DYSPNOEA [None]
  - LUNG DISORDER [None]
  - THROAT IRRITATION [None]
